FAERS Safety Report 10606160 (Version 1)
Quarter: 2014Q4

REPORT INFORMATION
  Report Type: Spontaneous
  Country: US (occurrence: None)
  Receive Date: 20141121
  Receipt Date: 20141121
  Transmission Date: 20150529
  Serious: Yes (Other)
  Sender: FDA-Public Use
  Company Number: 201411054

PATIENT
  Sex: Male

DRUGS (1)
  1. TESTIM [Suspect]
     Active Substance: TESTOSTERONE
     Indication: BLOOD TESTOSTERONE DECREASED
     Route: 062
     Dates: start: 2006, end: 201403

REACTIONS (8)
  - Myocardial infarction [None]
  - Coronary artery occlusion [None]
  - Pulmonary thrombosis [None]
  - Economic problem [None]
  - Emotional disorder [None]
  - Unevaluable event [None]
  - Thrombosis [None]
  - Multiple injuries [None]
